FAERS Safety Report 24832184 (Version 1)
Quarter: 2025Q1

REPORT INFORMATION
  Report Type: Spontaneous
  Country: GB (occurrence: GB)
  Receive Date: 20250110
  Receipt Date: 20250110
  Transmission Date: 20250409
  Serious: Yes (Hospitalization, Other)
  Sender: DR REDDYS
  Company Number: GB-MLMSERVICE-20240524-PI075734-00246-1

PATIENT
  Age: 8 Decade
  Sex: Male

DRUGS (2)
  1. OLANZAPINE [Suspect]
     Active Substance: OLANZAPINE
     Indication: Mania
  2. DIAZEPAM [Suspect]
     Active Substance: DIAZEPAM
     Indication: Mania

REACTIONS (2)
  - Condition aggravated [Unknown]
  - Parkinsonism [Unknown]
